FAERS Safety Report 16855343 (Version 1)
Quarter: 2019Q4

REPORT INFORMATION
  Report Type: Spontaneous
  Country: US (occurrence: US)
  Receive Date: 20190926
  Receipt Date: 20190926
  Transmission Date: 20200122
  Serious: Yes (Hospitalization)
  Sender: FDA-Public Use
  Company Number: None

PATIENT
  Age: 76 Year
  Sex: Female

DRUGS (16)
  1. BENICAR [Concomitant]
     Active Substance: OLMESARTAN MEDOXOMIL
  2. MIRTAZAPINE. [Concomitant]
     Active Substance: MIRTAZAPINE
  3. POT CHLORIDE [Concomitant]
     Active Substance: POTASSIUM CHLORIDE
  4. ENTECAVIR. [Suspect]
     Active Substance: ENTECAVIR
     Indication: PRODUCT USED FOR UNKNOWN INDICATION
     Route: 048
     Dates: start: 20180123
  5. IBUPROFEN. [Concomitant]
     Active Substance: IBUPROFEN
  6. BACLOFEN. [Concomitant]
     Active Substance: BACLOFEN
  7. LEXAPRO [Concomitant]
     Active Substance: ESCITALOPRAM OXALATE
  8. NORVASC [Concomitant]
     Active Substance: AMLODIPINE BESYLATE
  9. DRONABINOL. [Concomitant]
     Active Substance: DRONABINOL
  10. GABAPENTIN. [Concomitant]
     Active Substance: GABAPENTIN
  11. METOCLOPRAM [Concomitant]
     Active Substance: METOCLOPRAMIDE
  12. ONDANSETRON [Concomitant]
     Active Substance: ONDANSETRON
  13. TRAZODONE [Concomitant]
     Active Substance: TRAZODONE HYDROCHLORIDE
  14. OLMESA MEDOX [Concomitant]
  15. QUETIAPINE. [Concomitant]
     Active Substance: QUETIAPINE
  16. TRAMADOL. [Concomitant]
     Active Substance: TRAMADOL

REACTIONS (1)
  - Infection [None]

NARRATIVE: CASE EVENT DATE: 20190916
